FAERS Safety Report 8765937 (Version 1)
Quarter: 2012Q4

REPORT INFORMATION
  Report Type: 
  Country: US (occurrence: US)
  Receive Date: 20120904
  Receipt Date: 20120904
  Transmission Date: 20130627
  Serious: Yes (Hospitalization, Other)
  Sender: FDA-Public Use
  Company Number: US-009507513-2012SP017798

PATIENT

DRUGS (3)
  1. PEG-INTRON [Suspect]
     Indication: HEPATITIS C
     Dosage: 150 ?g, QW
     Route: 058
     Dates: start: 20120301, end: 20120816
  2. UNSPECIFIED INGREDIENT [Suspect]
     Indication: HEPATITIS C
     Dosage: 600 mg, QD
     Route: 065
     Dates: start: 20120301, end: 20120816
  3. TELAPREVIR [Suspect]
     Indication: HEPATITIS C
     Dosage: 750 mg, TID
     Route: 048
     Dates: start: 20120301, end: 20120816

REACTIONS (12)
  - Anaemia [Unknown]
  - Dehydration [Recovering/Resolving]
  - Anorectal discomfort [Recovered/Resolved]
  - Vomiting [Unknown]
  - Malaise [Unknown]
  - Nausea [Unknown]
  - Transfusion [Unknown]
  - White blood cell count decreased [Unknown]
  - Platelet count decreased [Unknown]
  - Fluid replacement [Unknown]
  - Muscle atrophy [Unknown]
  - Muscle spasms [Unknown]
